FAERS Safety Report 14858565 (Version 1)
Quarter: 2018Q2

REPORT INFORMATION
  Report Type: Spontaneous
  Country: US (occurrence: US)
  Receive Date: 20180421
  Receipt Date: 20180421
  Transmission Date: 20180711
  Serious: No
  Sender: FDA-Public Use
  Company Number: None

PATIENT
  Age: 57 Year
  Sex: Female
  Weight: 83.25 kg

DRUGS (21)
  1. DYSPORT [Suspect]
     Active Substance: ABOBOTULINUMTOXINA
     Indication: SKIN DISORDER
     Dosage: ?          OTHER FREQUENCY:ONE TIME;?
     Route: 058
     Dates: start: 20180418
  2. VITAMIN E [Concomitant]
     Active Substance: .ALPHA.-TOCOPHEROL
  3. PROBIOTIC ASPIRIN 81 MG [Concomitant]
  4. DILTIAZEM. [Concomitant]
     Active Substance: DILTIAZEM
  5. NEUROTIN (GABAPENTIN) [Concomitant]
     Active Substance: GABAPENTIN
  6. AMITIZA [Concomitant]
     Active Substance: LUBIPROSTONE
  7. SUPER B-COMPLEX [Concomitant]
  8. ALER-TEC OTC ADDERALL [Concomitant]
  9. ESTRADIOL. [Concomitant]
     Active Substance: ESTRADIOL
  10. SYNTHROID [Concomitant]
     Active Substance: LEVOTHYROXINE SODIUM
  11. GAIA ADRENAL HEALTH NIGHTLY RESTORE [Concomitant]
  12. DOXYCYCLINE HYCLATE. [Concomitant]
     Active Substance: DOXYCYCLINE HYCLATE
  13. ESOMEPROZAL W/MAGNESIUM [Concomitant]
  14. LINZESS [Concomitant]
     Active Substance: LINACLOTIDE
  15. VITAMIN D3 [Concomitant]
     Active Substance: CHOLECALCIFEROL
  16. SAM-E [Concomitant]
     Active Substance: ADEMETIONINE
  17. ARICEPT (DONEPEZIL) HCL [Concomitant]
  18. MOBIC [Concomitant]
     Active Substance: MELOXICAM
  19. HALCION (TRIAZOLAM) [Concomitant]
  20. TRINTELLIX [Concomitant]
     Active Substance: VORTIOXETINE HYDROBROMIDE
  21. ADDERALL (DEXTROAMPHETAMINE SULFATE) [Concomitant]

REACTIONS (4)
  - Headache [None]
  - Dyspnoea [None]
  - Rash [None]
  - Urticaria [None]

NARRATIVE: CASE EVENT DATE: 20180419
